FAERS Safety Report 7578307-9 (Version None)
Quarter: 2011Q2

REPORT INFORMATION
  Report Type: 
  Country: None (occurrence: None)
  Receive Date: 20110628
  Receipt Date: 20110623
  Transmission Date: 20111010
  Serious: Yes (Hospitalization, Other)
  Sender: FDA-Public Use
  Company Number: GB-TEVA-287797ISR

PATIENT
  Age: 31 Year
  Sex: Male

DRUGS (2)
  1. VALPROIC ACID [Suspect]
     Dates: start: 20010901
  2. CLOZAPINE [Suspect]
     Indication: SCHIZOPHRENIA
     Dosage: 400 MILLIGRAM;
     Route: 048
     Dates: start: 20020501

REACTIONS (4)
  - PETECHIAE [None]
  - PHLEBITIS [None]
  - OEDEMA PERIPHERAL [None]
  - LIVEDO RETICULARIS [None]
